FAERS Safety Report 10400626 (Version 1)
Quarter: 2014Q3

REPORT INFORMATION
  Report Type: Spontaneous
  Country: US (occurrence: US)
  Receive Date: 20140821
  Receipt Date: 20140821
  Transmission Date: 20150326
  Serious: No
  Sender: FDA-Public Use
  Company Number: US-ASTRAZENECA-2014SE01442

PATIENT
  Age: 74 Year
  Sex: Male
  Weight: 83.9 kg

DRUGS (2)
  1. SYMBICORT [Suspect]
     Active Substance: BUDESONIDE\FORMOTEROL FUMARATE DIHYDRATE
     Indication: ASTHMA
     Dosage: 2PUFFS ONCE A DAY
     Route: 055
     Dates: start: 201401
  2. PROAIR HFA [Concomitant]
     Active Substance: ALBUTEROL SULFATE
     Indication: ASTHMA
     Dosage: COUPLE TIMES A DAY
     Dates: start: 201310

REACTIONS (5)
  - Confusional state [Recovered/Resolved]
  - Feeling abnormal [Unknown]
  - Memory impairment [Recovered/Resolved]
  - Intentional product misuse [Unknown]
  - Cough [Unknown]

NARRATIVE: CASE EVENT DATE: 201401
